FAERS Safety Report 14951178 (Version 2)
Quarter: 2018Q3

REPORT INFORMATION
  Report Type: Spontaneous
  Country: US (occurrence: US)
  Receive Date: 20180530
  Receipt Date: 20180920
  Transmission Date: 20181010
  Serious: Yes (Hospitalization, Disabling, Other)
  Sender: FDA-Public Use
  Company Number: US-REGENERON PHARMACEUTICALS, INC.-2018-18616

PATIENT

DRUGS (3)
  1. EYLEA [Suspect]
     Active Substance: AFLIBERCEPT
     Indication: NEOVASCULAR AGE-RELATED MACULAR DEGENERATION
     Dosage: 1 DF, UNK
     Route: 031
     Dates: start: 20180129
  2. EYLEA [Suspect]
     Active Substance: AFLIBERCEPT
     Dosage: UNK, EVERY 6 WEEKS, OD, LAST DOSE
     Route: 031
     Dates: start: 20180228, end: 20180228
  3. ZOLOFT [Concomitant]
     Active Substance: SERTRALINE HYDROCHLORIDE
     Indication: PRODUCT USED FOR UNKNOWN INDICATION
     Dosage: 50 MG, UNK

REACTIONS (7)
  - Retinal vein occlusion [Unknown]
  - Product contamination [Unknown]
  - Vitrectomy [Recovered/Resolved]
  - Lenticular opacities [Unknown]
  - Blindness transient [Recovered/Resolved]
  - Hypertension [Recovered/Resolved]
  - Vitritis [Recovered/Resolved]

NARRATIVE: CASE EVENT DATE: 20180129
